FAERS Safety Report 16895779 (Version 1)
Quarter: 2019Q4

REPORT INFORMATION
  Report Type: Spontaneous
  Country: US (occurrence: US)
  Receive Date: 20190814
  Receipt Date: 20190814
  Transmission Date: 20200122
  Serious: No
  Sender: FDA-Public Use
  Company Number: None

PATIENT
  Age: 53 Year
  Sex: Male

DRUGS (1)
  1. SIMPONI [Suspect]
     Active Substance: GOLIMUMAB
     Dates: start: 201903

REACTIONS (4)
  - Urinary tract infection [None]
  - Prostatitis [None]
  - Therapy cessation [None]
  - Dysuria [None]

NARRATIVE: CASE EVENT DATE: 20190814
